FAERS Safety Report 4950430-4 (Version None)
Quarter: 2006Q1

REPORT INFORMATION
  Report Type: 
  Country: None (occurrence: None)
  Receive Date: 20060322
  Receipt Date: 20060311
  Transmission Date: 20060701
  Serious: Yes (Hospitalization)
  Sender: FDA-Public Use
  Company Number: GB-JNJFOC-20060303366

PATIENT
  Age: 58 Year
  Sex: Female

DRUGS (6)
  1. RISPERDAL [Suspect]
     Indication: OBSESSIVE-COMPULSIVE DISORDER
     Route: 048
  2. CHLORPROMAZINE [Suspect]
     Indication: OBSESSIVE-COMPULSIVE DISORDER
     Dosage: NOCTE
     Route: 048
  3. FLUOXETINE HCL [Suspect]
     Indication: DEPRESSION
     Route: 048
     Dates: start: 20060127, end: 20060202
  4. OMEPRAZOLE [Concomitant]
     Indication: PROPHYLAXIS
     Route: 048
  5. GLICLAZIDE [Concomitant]
     Indication: DIABETES MELLITUS
     Route: 048
  6. METFORMIN [Concomitant]
     Indication: DIABETES MELLITUS
     Route: 048

REACTIONS (3)
  - FALL [None]
  - HYPOTENSION [None]
  - SPINAL SHOCK [None]
